FAERS Safety Report 5472782-1 (Version None)
Quarter: 2007Q4

REPORT INFORMATION
  Report Type: 
  Country: None (occurrence: None)
  Receive Date: 20071001
  Receipt Date: 20061019
  Transmission Date: 20080405
  Serious: No
  Sender: FDA-Public Use
  Company Number: US-ASTRAZENECA-2006UW20279

PATIENT
  Age: 76 Year
  Sex: Female
  Weight: 95.3 kg

DRUGS (1)
  1. ARIMIDEX [Suspect]
     Indication: BREAST CANCER
     Route: 048
     Dates: start: 20030901, end: 20060301

REACTIONS (2)
  - ARTHRALGIA [None]
  - HAIR GROWTH ABNORMAL [None]
